FAERS Safety Report 13830808 (Version 1)
Quarter: 2017Q3

REPORT INFORMATION
  Report Type: Spontaneous
  Country: HR (occurrence: HR)
  Receive Date: 20170803
  Receipt Date: 20170803
  Transmission Date: 20171127
  Serious: Yes (Other)
  Sender: FDA-Public Use
  Company Number: HR-TEVA-791109ACC

PATIENT
  Age: 52 Year
  Sex: Female

DRUGS (7)
  1. EBRANTIL [Suspect]
     Active Substance: URAPIDIL
     Route: 048
     Dates: start: 20170510, end: 20170510
  2. ACTOS [Suspect]
     Active Substance: PIOGLITAZONE HYDROCHLORIDE
     Route: 048
     Dates: start: 20170510, end: 20170510
  3. TRIPLIXAM [Suspect]
     Active Substance: AMLODIPINE BESYLATE\INDAPAMIDE\PERINDOPRIL ARGININE
     Route: 048
     Dates: start: 20170510, end: 20170510
  4. MOXONIDINE [Suspect]
     Active Substance: MOXONIDINE
     Route: 048
     Dates: start: 20170510, end: 20170510
  5. GINKGO [Suspect]
     Active Substance: GINKGO
     Route: 048
     Dates: start: 20170510, end: 20170510
  6. CERSON [Suspect]
     Active Substance: NITRAZEPAM
     Route: 048
     Dates: start: 20170510, end: 20170510
  7. LORATADINE. [Suspect]
     Active Substance: LORATADINE
     Route: 048
     Dates: start: 20170510, end: 20170510

REACTIONS (3)
  - Suicide attempt [Unknown]
  - Bradycardia [Unknown]
  - Hypotension [Unknown]

NARRATIVE: CASE EVENT DATE: 20170510
